FAERS Safety Report 18325707 (Version 1)
Quarter: 2020Q3

REPORT INFORMATION
  Report Type: Spontaneous
  Country: IT (occurrence: IT)
  Receive Date: 20200929
  Receipt Date: 20200929
  Transmission Date: 20201103
  Serious: Yes (Other)
  Sender: FDA-Public Use
  Company Number: IT-UCBSA-2020037952

PATIENT
  Age: 46 Year
  Sex: Female

DRUGS (6)
  1. KEPPRA [Suspect]
     Active Substance: LEVETIRACETAM
     Indication: EPILEPSY
     Dosage: 1000 MG DAILY
     Route: 048
     Dates: start: 20161001
  2. CIPRALEX [Concomitant]
     Active Substance: ESCITALOPRAM OXALATE
     Indication: MIXED ANXIETY AND DEPRESSIVE DISORDER
     Dosage: 10 MG DAILY
     Route: 048
  3. TIKLID [Concomitant]
     Active Substance: TICLOPIDINE HYDROCHLORIDE
     Indication: ANTIPLATELET THERAPY
     Dosage: 500 MG DAILY
  4. XARENEL [Concomitant]
     Indication: VITAMIN D DEFICIENCY
     Dosage: 1000 KILO?INTERNATIONAL UNIT DAILY
     Route: 048
  5. OXYBUTYNIN HYDROCHLORIDE [Concomitant]
     Active Substance: OXYBUTYNIN CHLORIDE
     Indication: INCONTINENCE
     Dosage: 7.5 MG DAILY
  6. LIORESAL [Concomitant]
     Active Substance: BACLOFEN
     Indication: HYPERTONIA
     Dosage: UNK

REACTIONS (1)
  - Leukopenia [Recovered/Resolved]

NARRATIVE: CASE EVENT DATE: 20200214
